FAERS Safety Report 22053688 (Version 1)
Quarter: 2023Q1

REPORT INFORMATION
  Report Type: Spontaneous
  Country: HR (occurrence: None)
  Receive Date: 20230302
  Receipt Date: 20230302
  Transmission Date: 20230417
  Serious: Yes (Other)
  Sender: FDA-Public Use
  Company Number: 2023A045119

PATIENT
  Sex: Female

DRUGS (4)
  1. QUETIAPINE FUMARATE [Suspect]
     Active Substance: QUETIAPINE FUMARATE
     Route: 048
     Dates: start: 202301, end: 202301
  2. FEVARIN [Suspect]
     Active Substance: FLUVOXAMINE MALEATE
     Dates: start: 202301, end: 202301
  3. DIAZEPAM [Suspect]
     Active Substance: DIAZEPAM
     Dates: start: 202301, end: 202301
  4. VALPROATE SODIUM [Suspect]
     Active Substance: VALPROATE SODIUM
     Dates: start: 202301, end: 202301

REACTIONS (5)
  - Electrocardiogram QT prolonged [Unknown]
  - Loss of consciousness [Unknown]
  - Sopor [Unknown]
  - Tachycardia [Unknown]
  - Somnolence [Unknown]

NARRATIVE: CASE EVENT DATE: 20230101
